FAERS Safety Report 25452498 (Version 1)
Quarter: 2025Q2

REPORT INFORMATION
  Report Type: Spontaneous
  Country: US (occurrence: None)
  Receive Date: 20250618
  Receipt Date: 20250618
  Transmission Date: 20250716
  Serious: No
  Sender: FDA-CTU
  Company Number: None

PATIENT
  Age: 90 Year
  Sex: Female
  Weight: 54.88 kg

DRUGS (1)
  1. SIMPONI [Suspect]
     Active Substance: GOLIMUMAB
     Indication: Rheumatoid arthritis
     Dosage: INJECT 50MG SUBCUTANEOUSLY EVERY 4 WEEKS AS DIRECTED.
     Route: 058
     Dates: start: 202404

REACTIONS (1)
  - Death [None]
